FAERS Safety Report 12667268 (Version 1)
Quarter: 2016Q3

REPORT INFORMATION
  Report Type: Spontaneous
  Country: US (occurrence: None)
  Receive Date: 20160818
  Receipt Date: 20160818
  Transmission Date: 20161109
  Serious: Yes (Death, Hospitalization)
  Sender: FDA-Public Use
  Company Number: None

PATIENT
  Age: 19 Year
  Sex: Male
  Weight: 75 kg

DRUGS (6)
  1. DAUNORUBICIN [Suspect]
     Active Substance: DAUNORUBICIN
     Dates: end: 20160614
  2. ONCASPAR [Suspect]
     Active Substance: PEGASPARGASE
     Dates: end: 20160604
  3. CYTARABINE. [Suspect]
     Active Substance: CYTARABINE
     Dates: end: 20160531
  4. VINCRISTINE SULFATE. [Suspect]
     Active Substance: VINCRISTINE SULFATE
     Dates: end: 20160614
  5. PREDNISONE. [Suspect]
     Active Substance: PREDNISONE
     Dates: end: 20160624
  6. METHOTREXATE. [Suspect]
     Active Substance: METHOTREXATE
     Dates: end: 20160608

REACTIONS (11)
  - Abdominal pain [None]
  - Colitis [None]
  - Pancytopenia [None]
  - Vomiting [None]
  - Peritonitis [None]
  - Pyrexia [None]
  - Nausea [None]
  - Neutropenic colitis [None]
  - Multiple organ dysfunction syndrome [None]
  - Gastrointestinal necrosis [None]
  - Haemodynamic instability [None]

NARRATIVE: CASE EVENT DATE: 20160625
